FAERS Safety Report 9230813 (Version 2)
Quarter: 2013Q2

REPORT INFORMATION
  Report Type: Spontaneous
  Country: GB (occurrence: None)
  Receive Date: 20130411
  Receipt Date: 20130418
  Transmission Date: 20140414
  Serious: Yes (Other)
  Sender: FDA-Public Use
  Company Number: AUR-APL-2013-02923

PATIENT
  Age: 53 Year
  Sex: Male

DRUGS (8)
  1. RAMIPRIL (RAMIPRIL) [Suspect]
     Indication: HYPERTENSION
     Dosage: (2.5 MG), ORAL
     Route: 048
     Dates: start: 20130215, end: 20130307
  2. CLOZAPINE (CLOZAPINE) [Concomitant]
  3. FERROUS FUMARATE (FERROUS FUMARATE) [Concomitant]
  4. HYOSCINE HYDROBROMIDE (HYOSCINE HYDROBROMIDE) [Concomitant]
  5. LANSOPRAZOLE (LANSOPRAZOLE) [Concomitant]
  6. LORAZEPAM (LORAZEPAM) [Concomitant]
  7. SERTRALINE (SERTRALINE) (SERTRALINE) [Concomitant]
  8. SIMVASTATIN (SIMVASTATIN) [Concomitant]

REACTIONS (3)
  - Eosinophilia [None]
  - White blood cell count increased [None]
  - Neutrophil count increased [None]
